FAERS Safety Report 6554619-2 (Version None)
Quarter: 2010Q1

REPORT INFORMATION
  Report Type: 
  Country: None (occurrence: None)
  Receive Date: 20100125
  Receipt Date: 20100104
  Transmission Date: 20100710
  Serious: Yes (Other)
  Sender: FDA-Public Use
  Company Number: LIO2010001

PATIENT
  Age: 48 Year
  Sex: Female

DRUGS (2)
  1. LIOTHYRONINE SODIUM          USP METRICS, INC. [Suspect]
     Indication: THYROID OPERATION
     Dosage: 15 MCG TABLETS,QD, ORAL
     Route: 048
     Dates: start: 20090801, end: 20091118
  2. FLAXSEED [Concomitant]

REACTIONS (13)
  - AMNESIA [None]
  - ARRHYTHMIA [None]
  - BLOOD PRESSURE INCREASED [None]
  - CONFUSIONAL STATE [None]
  - HEADACHE [None]
  - HEART RATE INCREASED [None]
  - NERVOUSNESS [None]
  - OEDEMA PERIPHERAL [None]
  - RASH [None]
  - SWELLING FACE [None]
  - THYROXINE INCREASED [None]
  - TREMOR [None]
  - TRI-IODOTHYRONINE INCREASED [None]
